FAERS Safety Report 10036409 (Version 2)
Quarter: 2014Q2

REPORT INFORMATION
  Report Type: Spontaneous
  Country: US (occurrence: US)
  Receive Date: 20140325
  Receipt Date: 20140410
  Transmission Date: 20141212
  Serious: Yes (Hospitalization, Other)
  Sender: FDA-Public Use
  Company Number: US-ACORDA-ACO_102341_2014

PATIENT
  Age: 54 Year
  Sex: Female

DRUGS (8)
  1. TIZANIDINE [Suspect]
     Indication: RESTLESS LEGS SYNDROME
     Dosage: 4 MG, TID
     Route: 048
  2. TIZANIDINE [Suspect]
     Dosage: UNK,UNK
     Route: 065
  3. GABAPENTIN [Suspect]
     Indication: PRODUCT USED FOR UNKNOWN INDICATION
     Dosage: 400 MG, TID
     Route: 065
  4. GABAPENTIN [Suspect]
     Dosage: UNK
     Route: 065
  5. SPIRONOLACTONE [Suspect]
     Indication: PRODUCT USED FOR UNKNOWN INDICATION
     Dosage: UNK,UNK
     Route: 065
  6. ABILIFY [Suspect]
     Indication: PRODUCT USED FOR UNKNOWN INDICATION
     Dosage: UNK,UNK
     Route: 065
  7. ABILIFY [Suspect]
     Dosage: 2 MG, UNK
     Route: 065
     Dates: end: 20140326
  8. COPAXONE [Concomitant]
     Indication: MULTIPLE SCLEROSIS
     Dosage: 20 MG, UNK
     Route: 065
     Dates: start: 20080521

REACTIONS (8)
  - Blood pressure systolic decreased [Recovering/Resolving]
  - Hyperchlorhydria [Recovering/Resolving]
  - Dyspnoea [Recovering/Resolving]
  - Hypotension [Recovering/Resolving]
  - Dizziness [Recovering/Resolving]
  - Heart rate decreased [Recovering/Resolving]
  - Multiple sclerosis relapse [Unknown]
  - Stress [Unknown]
